FAERS Safety Report 17702626 (Version 2)
Quarter: 2020Q2

REPORT INFORMATION
  Report Type: Report from Study
  Country: US (occurrence: US)
  Receive Date: 20200424
  Receipt Date: 20200630
  Transmission Date: 20200714
  Serious: Yes (Other)
  Sender: FDA-Public Use
  Company Number: US-BIOGEN-2020BI00865952

PATIENT
  Age: 18 Year
  Sex: Female

DRUGS (1)
  1. TYSABRI [Suspect]
     Active Substance: NATALIZUMAB
     Indication: MULTIPLE SCLEROSIS
     Dosage: INFUSED FOR 1 HOUR
     Route: 042

REACTIONS (9)
  - Diplopia [Unknown]
  - Hypoaesthesia [Unknown]
  - Disturbance in attention [Unknown]
  - Deafness unilateral [Unknown]
  - Memory impairment [Unknown]
  - Micturition urgency [Unknown]
  - Balance disorder [Unknown]
  - Urinary incontinence [Unknown]
  - Fatigue [Unknown]

NARRATIVE: CASE EVENT DATE: 201404
